FAERS Safety Report 5826257-8 (Version None)
Quarter: 2008Q3

REPORT INFORMATION
  Report Type: 
  Country: None (occurrence: None)
  Receive Date: 20080729
  Receipt Date: 20080717
  Transmission Date: 20090109
  Serious: Yes (Hospitalization)
  Sender: FDA-Public Use
  Company Number: CA-PFIZER INC-2008051443

PATIENT
  Age: 63 Year
  Sex: Female
  Weight: 67 kg

DRUGS (5)
  1. SU-011,248 [Suspect]
     Indication: ENDOMETRIAL CANCER
     Route: 048
     Dates: start: 20080225, end: 20080504
  2. HYDROMORPHONE HCL [Concomitant]
  3. OMEPRAZOLE [Concomitant]
  4. METOCLOPRAMIDE [Concomitant]
  5. NYSTATIN [Concomitant]

REACTIONS (14)
  - ABDOMINAL PAIN [None]
  - ASCITES [None]
  - BLADDER DISORDER [None]
  - BLOOD POTASSIUM DECREASED [None]
  - CAPILLARY LEAK SYNDROME [None]
  - FATIGUE [None]
  - GASTROINTESTINAL FISTULA [None]
  - HAEMOGLOBIN DECREASED [None]
  - HYPOKALAEMIA [None]
  - PLATELET COUNT DECREASED [None]
  - PSEUDOMONAS INFECTION [None]
  - SMALL INTESTINAL OBSTRUCTION [None]
  - STREPTOCOCCAL INFECTION [None]
  - TUMOUR NECROSIS [None]
